FAERS Safety Report 24744967 (Version 2)
Quarter: 2025Q3

REPORT INFORMATION
  Report Type: Spontaneous
  Country: US (occurrence: US)
  Receive Date: 20241217
  Receipt Date: 20250816
  Transmission Date: 20251020
  Serious: No
  Sender: ALEXION PHARMACEUTICALS
  Company Number: US-AstraZeneca-CH-00730084AP

PATIENT
  Sex: Female

DRUGS (1)
  1. BYETTA [Suspect]
     Active Substance: EXENATIDE

REACTIONS (11)
  - Brain fog [Unknown]
  - Headache [Unknown]
  - Feeling jittery [Unknown]
  - Dizziness [Unknown]
  - Diarrhoea [Unknown]
  - No adverse event [Unknown]
  - Counterfeit product administered [Unknown]
  - Incorrect dose administered [Unknown]
  - No adverse event [Unknown]
  - Vomiting [Unknown]
  - Visual impairment [Unknown]
